FAERS Safety Report 8363938-9 (Version None)
Quarter: 2012Q1

REPORT INFORMATION
  Report Type: 
  Country: None (occurrence: None)
  Receive Date: 20120323
  Receipt Date: 20111222
  Transmission Date: 20120608
  Serious: Yes (Disabling)
  Sender: FDA-Public Use
  Company Number: 163-21880-11113776

PATIENT
  Age: 67 Week
  Sex: Female
  Weight: 102 kg

DRUGS (7)
  1. AMLODIPINE (AMLOIDPINE) [Concomitant]
  2. TYLENOL W/ CODEINE NO. 3 [Concomitant]
  3. FLUOXETINE [Concomitant]
  4. GUAIFENESIN  W/CODEINE (CHERACOL /USA) [Concomitant]
  5. ARANESP [Concomitant]
  6. REVLIMID [Suspect]
     Indication: MULTIPLE MYELOMA
     Dosage: 15 MG, DAILY, PO
     Route: 048
     Dates: start: 20090101, end: 20091201
  7. ASPIRIN [Concomitant]

REACTIONS (2)
  - NEOPLASM PROGRESSION [None]
  - MULTIPLE MYELOMA [None]
